FAERS Safety Report 9136913 (Version 1)
Quarter: 2013Q1

REPORT INFORMATION
  Report Type: Spontaneous
  Country: US (occurrence: US)
  Receive Date: 20130304
  Receipt Date: 20130304
  Transmission Date: 20140127
  Serious: No
  Sender: FDA-Public Use
  Company Number: US-ABBOTT-12P-163-1017954-00

PATIENT
  Age: 76 None
  Sex: Male
  Weight: 78.09 kg

DRUGS (5)
  1. ANDROGEL [Suspect]
     Indication: BLOOD TESTOSTERONE DECREASED
     Dosage: LOT AND EXP NOT AVAILABLE, PUMP
     Route: 061
     Dates: start: 200904, end: 201106
  2. ANDROGEL [Suspect]
     Indication: BLOOD TESTOSTERONE DECREASED
     Dosage: LOT AND EXP NOT AVAILABLE, PUMP
     Route: 061
     Dates: start: 201106, end: 201204
  3. ANDROGEL [Suspect]
     Dosage: LOT AND EXP NOT AVAILABLE
     Route: 061
     Dates: start: 201204, end: 20121126
  4. HYDROCORTISONE [Concomitant]
     Indication: PRODUCT USED FOR UNKNOWN INDICATION
     Route: 048
     Dates: start: 2009
  5. LEVOTHYROXINE [Concomitant]
     Indication: PRODUCT USED FOR UNKNOWN INDICATION

REACTIONS (4)
  - Lip swelling [Recovered/Resolved]
  - Lip dry [Recovered/Resolved]
  - Chapped lips [Recovered/Resolved]
  - Drug hypersensitivity [Recovered/Resolved]
